FAERS Safety Report 7539530-2 (Version None)
Quarter: 2011Q2

REPORT INFORMATION
  Report Type: 
  Country: None (occurrence: None)
  Receive Date: 20110610
  Receipt Date: 20110527
  Transmission Date: 20111010
  Serious: Yes (Hospitalization)
  Sender: FDA-Public Use
  Company Number: FR-JNJFOC-20110600406

PATIENT
  Age: 50 Year
  Sex: Female

DRUGS (1)
  1. ACTIFED [Suspect]
     Indication: OROPHARYNGEAL DISCOMFORT
     Dosage: ONE AT NOON AND THE OTHER IN THE EVENING
     Route: 048
     Dates: start: 20101201, end: 20101201

REACTIONS (5)
  - OEDEMA [None]
  - PRURITUS [None]
  - RASH GENERALISED [None]
  - RASH MACULAR [None]
  - ACUTE GENERALISED EXANTHEMATOUS PUSTULOSIS [None]
